FAERS Safety Report 9596986 (Version 2)
Quarter: 2013Q4

REPORT INFORMATION
  Report Type: Report from Study
  Country: US (occurrence: US)
  Receive Date: 20131004
  Receipt Date: 20131004
  Transmission Date: 20140711
  Serious: Yes (Hospitalization)
  Sender: FDA-Public Use
  Company Number: US-DENDREON CORPORATION-2013PROUSA03183

PATIENT
  Age: 64 Year
  Sex: Male
  Weight: 113.11 kg

DRUGS (12)
  1. SIPULEUCEL-T [Suspect]
     Indication: PROSTATE CANCER METASTATIC
     Dosage: 250 ML, SINGLE
     Route: 042
     Dates: start: 20130718, end: 20130718
  2. SIPULEUCEL-T [Suspect]
     Dosage: 250 ML, SINGLE
     Route: 042
     Dates: start: 20130815, end: 20130815
  3. HYDROCODONE [Concomitant]
     Indication: BACK PAIN
     Dosage: 5 MG, UNK
  4. ACETAMINOPHEN [Concomitant]
     Indication: BACK PAIN
     Dosage: 325 MG, UNK
  5. OMEPRAZOLE [Concomitant]
     Indication: GASTROOESOPHAGEAL REFLUX PROPHYLAXIS
     Dosage: 20 MG, QD
  6. PROCHLORPERAZINE MALEATE [Concomitant]
     Indication: NAUSEA
     Dosage: 10 MG, UNK
  7. PROCHLORPERAZINE MALEATE [Concomitant]
     Indication: VOMITING
  8. AUGMENTIN [Concomitant]
     Indication: UPPER-AIRWAY COUGH SYNDROME
  9. ASPIRIN [Concomitant]
     Dosage: 81 MG, QD
  10. BACLOFEN [Concomitant]
     Dosage: 10 UNK, TID
  11. PRAMIPEXOLE DIHCL [Concomitant]
     Dosage: 0.125 UNK, HS
  12. LORTAB [Concomitant]
     Dosage: 5 MG, PRN

REACTIONS (2)
  - Deep vein thrombosis [Recovered/Resolved with Sequelae]
  - Pulmonary embolism [Recovered/Resolved]
